FAERS Safety Report 6312404-0 (Version None)
Quarter: 2009Q3

REPORT INFORMATION
  Report Type: 
  Country: None (occurrence: None)
  Receive Date: 20090813
  Receipt Date: 20090730
  Transmission Date: 20100115
  Serious: Yes (Hospitalization)
  Sender: FDA-Public Use
  Company Number: 2009SP017206

PATIENT
  Age: 56 Year
  Sex: Male

DRUGS (5)
  1. DEXAMETHASONE [Suspect]
     Indication: EYE INFLAMMATION
     Dosage: ; OPH
     Route: 047
     Dates: start: 20080717, end: 20080901
  2. BRIMONIDINE TARTRATE [Suspect]
     Indication: EYE INFLAMMATION
     Dosage: ; OPH
     Route: 047
     Dates: start: 20080717, end: 20080901
  3. MINIMS PREDNISOLONE (PREDNISOLONE SODIUM PHOSPHATE) [Suspect]
     Indication: EYE INFLAMMATION
     Dosage: ; OPH
     Route: 047
     Dates: start: 20080808, end: 20080901
  4. MINIMS CHLORAMPHENICOL (CHLORAMPHENICOL) [Suspect]
     Indication: EYE INFLAMMATION
     Dosage: ; OPH
     Route: 047
     Dates: start: 20080801, end: 20080901
  5. TOBRAMYCIN [Suspect]
     Indication: EYE INFLAMMATION
     Dosage: ; OPH
     Route: 047
     Dates: start: 20080717, end: 20080901

REACTIONS (2)
  - ASTHMA [None]
  - HYPERSENSITIVITY [None]
